FAERS Safety Report 9311623 (Version 1)
Quarter: 2013Q2

REPORT INFORMATION
  Report Type: Report from Study
  Country: US (occurrence: US)
  Receive Date: 20130528
  Receipt Date: 20130528
  Transmission Date: 20140414
  Serious: No
  Sender: FDA-Public Use
  Company Number: US-ABBOTT-13P-163-1053429-00

PATIENT
  Sex: Female
  Weight: 77.18 kg

DRUGS (11)
  1. ZEMPLAR [Suspect]
     Indication: PRODUCT USED FOR UNKNOWN INDICATION
     Dosage: 1 MCG ON MONDAY, WEDNESDAY + FRIDAY
     Dates: start: 2008
  2. WARFARIN [Concomitant]
     Indication: ATRIAL FIBRILLATION
  3. SIMVASTATIN [Concomitant]
     Indication: BLOOD CHOLESTEROL INCREASED
  4. PROZAC [Concomitant]
     Indication: OBSESSIVE-COMPULSIVE DISORDER
  5. DILTIAZEM [Concomitant]
     Indication: CARDIAC DISORDER
  6. CHLORTHALIDONE [Concomitant]
     Indication: HYPERTENSION
  7. ATENOLOL [Concomitant]
     Indication: CARDIAC DISORDER
  8. ATENOLOL [Concomitant]
     Indication: HYPERTENSION
  9. QUINAPRIL [Concomitant]
     Indication: PRODUCT USED FOR UNKNOWN INDICATION
  10. LEVOTHYROXINE [Concomitant]
     Indication: HYPOTHYROIDISM
  11. ALLOPURINOL [Concomitant]
     Indication: GOUT

REACTIONS (9)
  - Body height decreased [Not Recovered/Not Resolved]
  - Weight decreased [Not Recovered/Not Resolved]
  - Fall [Recovered/Resolved]
  - Gastrooesophageal reflux disease [Not Recovered/Not Resolved]
  - Influenza [Recovered/Resolved]
  - Blood potassium decreased [Not Recovered/Not Resolved]
  - Dehydration [Recovered/Resolved]
  - Head injury [Recovered/Resolved]
  - Diarrhoea [Recovered/Resolved]
